FAERS Safety Report 11390316 (Version 1)
Quarter: 2015Q3

REPORT INFORMATION
  Report Type: Spontaneous
  Country: US (occurrence: None)
  Receive Date: 20150813
  Receipt Date: 20150813
  Transmission Date: 20151125
  Serious: Yes (Other)
  Sender: FDA-Public Use
  Company Number: US-H14001-15-01475

PATIENT
  Sex: Female

DRUGS (3)
  1. CYTOXAN [Suspect]
     Active Substance: CYCLOPHOSPHAMIDE
     Indication: BREAST CANCER
     Dates: start: 2009
  2. TAXOL [Suspect]
     Active Substance: PACLITAXEL
  3. ADRIAMYCIN [Suspect]
     Active Substance: DOXORUBICIN HYDROCHLORIDE
     Indication: BREAST CANCER
     Dates: start: 2009

REACTIONS (1)
  - Breast cancer recurrent [None]

NARRATIVE: CASE EVENT DATE: 201212
